FAERS Safety Report 13651697 (Version 1)
Quarter: 2017Q2

REPORT INFORMATION
  Report Type: Report from Study
  Country: US (occurrence: US)
  Receive Date: 20170614
  Receipt Date: 20170614
  Transmission Date: 20170830
  Serious: Yes (Other)
  Sender: FDA-Public Use
  Company Number: US-GILEAD-2017-0273234

PATIENT
  Age: 73 Year
  Sex: Female
  Weight: 43.84 kg

DRUGS (26)
  1. LEVOTHYROXINE. [Concomitant]
     Active Substance: LEVOTHYROXINE
  2. TADALAFIL [Concomitant]
     Active Substance: TADALAFIL
  3. OXYCODONE [Concomitant]
     Active Substance: OXYCODONE
  4. CLONAZEPAM. [Concomitant]
     Active Substance: CLONAZEPAM
  5. PREDNISONE. [Concomitant]
     Active Substance: PREDNISONE
  6. TRAZODONE [Concomitant]
     Active Substance: TRAZODONE HYDROCHLORIDE
  7. MENTHOL. [Concomitant]
     Active Substance: MENTHOL
  8. POLYETHYLENE GLYCOL [Concomitant]
     Active Substance: POLYETHYLENE GLYCOLS
  9. OMEPRAZOLE. [Concomitant]
     Active Substance: OMEPRAZOLE
  10. AMBRISENTAN [Suspect]
     Active Substance: AMBRISENTAN
     Indication: PULMONARY ARTERIAL HYPERTENSION
     Dosage: 10 MG, QD
     Route: 065
  11. ADCIRCA [Concomitant]
     Active Substance: TADALAFIL
  12. FLUTICASONE. [Concomitant]
     Active Substance: FLUTICASONE
  13. IBUPROFEN. [Concomitant]
     Active Substance: IBUPROFEN
  14. MELATONIN [Concomitant]
     Active Substance: MELATONIN
  15. ALUMINIUM HYDROXIDE W/MAGNESIUM HYDROXIDE/SIMETICONE [Concomitant]
  16. POLYVINYL ALCOHOL [Concomitant]
     Active Substance: POLYVINYL ALCOHOL
  17. MECLIZINE [Concomitant]
     Active Substance: MECLIZINE HYDROCHLORIDE
  18. SPIRIVA [Concomitant]
     Active Substance: TIOTROPIUM BROMIDE MONOHYDRATE
  19. REVATIO [Concomitant]
     Active Substance: SILDENAFIL CITRATE
  20. MAGNESIUM HYDROXIDE. [Concomitant]
     Active Substance: MAGNESIUM HYDROXIDE
  21. FUROSEMIDE. [Concomitant]
     Active Substance: FUROSEMIDE
  22. LIDOCAINE VISCOUS [Concomitant]
     Active Substance: LIDOCAINE HYDROCHLORIDE
  23. FOLIC ACID. [Concomitant]
     Active Substance: FOLIC ACID
  24. FEXOFENADINE [Concomitant]
     Active Substance: FEXOFENADINE\FEXOFENADINE HYDROCHLORIDE
  25. CALCIUM CARBONATE. [Concomitant]
     Active Substance: CALCIUM CARBONATE
  26. ACETAMINOPHEN. [Concomitant]
     Active Substance: ACETAMINOPHEN

REACTIONS (7)
  - Condition aggravated [Not Recovered/Not Resolved]
  - Hypotension [Unknown]
  - Cardiac failure [Not Recovered/Not Resolved]
  - Autoimmune disorder [Not Recovered/Not Resolved]
  - Chest discomfort [Not Recovered/Not Resolved]
  - Dyspnoea [Not Recovered/Not Resolved]
  - Dizziness [Not Recovered/Not Resolved]
